FAERS Safety Report 17563039 (Version 3)
Quarter: 2020Q2

REPORT INFORMATION
  Report Type: Spontaneous
  Country: FR (occurrence: FR)
  Receive Date: 20200320
  Receipt Date: 20200409
  Transmission Date: 20200713
  Serious: Yes (Other)
  Sender: FDA-Public Use
  Company Number: FR-AUROBINDO-AUR-APL-2020-013625

PATIENT
  Sex: Male

DRUGS (2)
  1. MIRTAZAPINE FILM-COATED TABLET 15 MG [Suspect]
     Active Substance: MIRTAZAPINE
     Dosage: 37.5 MILLIGRAM, DAILY (HE TOOK 2 AND HAL TABLETS PER DAY)
     Route: 048
     Dates: start: 201911
  2. MIRTAZAPINE FILM-COATED TABLET 15 MG [Suspect]
     Active Substance: MIRTAZAPINE
     Indication: PRODUCT USED FOR UNKNOWN INDICATION
     Dosage: UNK
     Route: 048
     Dates: start: 201903

REACTIONS (2)
  - Intentional product misuse [Unknown]
  - Rectal haemorrhage [Not Recovered/Not Resolved]

NARRATIVE: CASE EVENT DATE: 202001
